FAERS Safety Report 23286287 (Version 1)
Quarter: 2023Q4

REPORT INFORMATION
  Report Type: Spontaneous
  Country: US (occurrence: None)
  Receive Date: 20231212
  Receipt Date: 20231212
  Transmission Date: 20240110
  Serious: No
  Sender: FDA-Public Use
  Company Number: 2023A280168

PATIENT
  Age: 26 Year
  Sex: Female

DRUGS (1)
  1. NEXIUM 24HR [Suspect]
     Active Substance: ESOMEPRAZOLE MAGNESIUM
     Indication: Dyspepsia
     Dosage: 1 DF, QD
     Route: 048

REACTIONS (4)
  - Vitamin D decreased [Unknown]
  - Haemoglobin decreased [Unknown]
  - Constipation [Unknown]
  - Product use issue [Unknown]
